FAERS Safety Report 24982385 (Version 1)
Quarter: 2025Q1

REPORT INFORMATION
  Report Type: Report from Study
  Country: CA (occurrence: CA)
  Receive Date: 20250218
  Receipt Date: 20250218
  Transmission Date: 20250409
  Serious: Yes (Other)
  Sender: JOHNSON AND JOHNSON
  Company Number: CA-JNJFOC-20250185399

PATIENT
  Age: 37 Year
  Sex: Male

DRUGS (8)
  1. REMICADE [Suspect]
     Active Substance: INFLIXIMAB
     Indication: Colitis ulcerative
     Route: 041
     Dates: start: 20231221
  2. REMICADE [Suspect]
     Active Substance: INFLIXIMAB
     Route: 041
     Dates: start: 20231221
  3. ZOPICLONE [Concomitant]
     Active Substance: ZOPICLONE
  4. MESALAMINE [Concomitant]
     Active Substance: MESALAMINE
  5. DEXILANT [Concomitant]
     Active Substance: DEXLANSOPRAZOLE
  6. BOTOX [Concomitant]
     Active Substance: ONABOTULINUMTOXINA
  7. TRAZODONE [Concomitant]
     Active Substance: TRAZODONE HYDROCHLORIDE
  8. EMTRICITABINE/TENOFOVIR EG [Concomitant]

REACTIONS (4)
  - Colitis ulcerative [Unknown]
  - Influenza like illness [Unknown]
  - Sinusitis [Not Recovered/Not Resolved]
  - COVID-19 [Unknown]

NARRATIVE: CASE EVENT DATE: 20241201
